FAERS Safety Report 15443230 (Version 1)
Quarter: 2018Q3

REPORT INFORMATION
  Report Type: Spontaneous
  Country: US (occurrence: US)
  Receive Date: 20180928
  Receipt Date: 20180928
  Transmission Date: 20181010
  Serious: Yes (Other)
  Sender: FDA-Public Use
  Company Number: US-OTSUKA-2018_016557

PATIENT
  Sex: Male
  Weight: 70.48 kg

DRUGS (11)
  1. ABILIFY [Suspect]
     Active Substance: ARIPIPRAZOLE
     Dosage: 15 MG, QD (QAM)
     Route: 048
     Dates: start: 200804, end: 2016
  2. REXULTI [Concomitant]
     Active Substance: BREXPIPRAZOLE
     Indication: PRODUCT USED FOR UNKNOWN INDICATION
     Dosage: 0.5 MG, QD
     Route: 048
  3. ABILIFY [Suspect]
     Active Substance: ARIPIPRAZOLE
     Indication: PSYCHOTIC DISORDER
     Dosage: 10 MG, QD
     Route: 048
     Dates: start: 200704, end: 2007
  4. TRAZODONE [Concomitant]
     Active Substance: TRAZODONE HYDROCHLORIDE
     Indication: PRODUCT USED FOR UNKNOWN INDICATION
     Dosage: 50 MG, QD (QHS)
     Route: 048
  5. ABILIFY [Suspect]
     Active Substance: ARIPIPRAZOLE
     Dosage: 10 MG, QD
     Route: 048
     Dates: start: 201607, end: 201611
  6. IBUPROFEN. [Concomitant]
     Active Substance: IBUPROFEN
     Indication: PRODUCT USED FOR UNKNOWN INDICATION
     Dosage: 800 MG, TID
     Route: 065
  7. REXULTI [Concomitant]
     Active Substance: BREXPIPRAZOLE
     Dosage: 1 MG, QD
     Route: 048
  8. ABILIFY [Suspect]
     Active Substance: ARIPIPRAZOLE
     Indication: MAJOR DEPRESSION
     Dosage: 5 MG, QD
     Route: 048
     Dates: start: 200701, end: 200704
  9. LEXAPRO [Suspect]
     Active Substance: ESCITALOPRAM OXALATE
     Indication: MAJOR DEPRESSION
     Dosage: 20 MG, QD (QHS)
     Route: 048
  10. ABILIFY [Suspect]
     Active Substance: ARIPIPRAZOLE
     Dosage: 20 MG, QD
     Route: 048
     Dates: start: 200712, end: 200804
  11. LEXAPRO [Suspect]
     Active Substance: ESCITALOPRAM OXALATE
     Indication: PSYCHOTIC DISORDER
     Dosage: 10 MG, QD
     Route: 048

REACTIONS (34)
  - Tinnitus [Unknown]
  - Insomnia [Unknown]
  - Economic problem [Unknown]
  - Blood pressure fluctuation [Unknown]
  - Constipation [Unknown]
  - Lumbar spinal stenosis [Unknown]
  - Nerve root compression [Unknown]
  - Drug ineffective [Unknown]
  - Crying [Unknown]
  - Obsessive-compulsive disorder [Unknown]
  - Musculoskeletal discomfort [Unknown]
  - Apathy [Unknown]
  - Compulsive sexual behaviour [Not Recovered/Not Resolved]
  - Poor quality sleep [Unknown]
  - Impulse-control disorder [Recovering/Resolving]
  - Self-medication [Unknown]
  - Paralysis [Unknown]
  - Tearfulness [Unknown]
  - Back pain [Unknown]
  - Irritability [Unknown]
  - Drug dose omission [Unknown]
  - Intervertebral disc disorder [Unknown]
  - Nocturia [Unknown]
  - Pain [Unknown]
  - Decreased appetite [Unknown]
  - Inappropriate schedule of drug administration [Unknown]
  - Pollakiuria [Unknown]
  - Asthenia [Unknown]
  - Restlessness [Unknown]
  - Weight decreased [Unknown]
  - Hyperreflexia [Unknown]
  - Hallucination, auditory [Unknown]
  - Disturbance in attention [Unknown]
  - Gambling disorder [Recovered/Resolved]

NARRATIVE: CASE EVENT DATE: 200701
